FAERS Safety Report 7554556-0 (Version None)
Quarter: 2011Q2

REPORT INFORMATION
  Report Type: 
  Country: None (occurrence: None)
  Receive Date: 20110617
  Receipt Date: 20110614
  Transmission Date: 20111010
  Serious: Yes (Death)
  Sender: FDA-Public Use
  Company Number: FR-ROCHE-759513

PATIENT
  Sex: Female

DRUGS (6)
  1. MOBIC [Suspect]
     Route: 048
     Dates: start: 20110112
  2. NICARDIPINE HCL [Concomitant]
     Indication: HYPERTENSION
     Route: 048
  3. NEXEN [Concomitant]
     Dates: start: 20110112
  4. ARAVA [Concomitant]
     Indication: RHEUMATOID ARTHRITIS
     Route: 048
  5. ACTEMRA [Suspect]
     Indication: RHEUMATOID ARTHRITIS
     Route: 042
     Dates: start: 20101215, end: 20110112
  6. ASPIRIN [Suspect]
     Indication: CARDIOVASCULAR EVENT PROPHYLAXIS
     Route: 048

REACTIONS (3)
  - CEREBROVASCULAR DISORDER [None]
  - MALAISE [None]
  - HAEMORRHAGIC STROKE [None]
